FAERS Safety Report 10981175 (Version 1)
Quarter: 2015Q1

REPORT INFORMATION
  Report Type: Spontaneous
  Country: US (occurrence: None)
  Receive Date: 20150227
  Receipt Date: 20150227
  Transmission Date: 20150721
  Serious: Yes (Other)
  Sender: FDA-Public Use
  Company Number: OMPQ-PR-1409S-1140

PATIENT
  Age: 43 Year
  Sex: Female

DRUGS (3)
  1. PRISTIQ (DESVENLAFAXINE SUCCINATE) [Concomitant]
     Active Substance: DESVENLAFAXINE SUCCINATE
  2. ARMOUR THYROID (THYROID) [Concomitant]
  3. OMNIPAQUE [Suspect]
     Active Substance: IOHEXOL
     Indication: CHEST WALL MASS
     Route: 042
     Dates: start: 20140912, end: 20140912

REACTIONS (2)
  - Pruritus [None]
  - Urticaria [None]

NARRATIVE: CASE EVENT DATE: 20140912
